FAERS Safety Report 10177283 (Version 1)
Quarter: 2014Q2

REPORT INFORMATION
  Report Type: Spontaneous
  Country: AU (occurrence: AU)
  Receive Date: 20140516
  Receipt Date: 20140516
  Transmission Date: 20141212
  Serious: Yes (Hospitalization)
  Sender: FDA-Public Use
  Company Number: AU-GLAXOSMITHKLINE-B0992881A

PATIENT
  Age: 54 Year
  Sex: Male

DRUGS (1)
  1. VOTRIENT [Suspect]
     Indication: RENAL CELL CARCINOMA
     Dosage: 800MG PER DAY
     Route: 065

REACTIONS (16)
  - Blood pressure increased [Unknown]
  - Hair colour changes [Unknown]
  - Pyrexia [Unknown]
  - Productive cough [Unknown]
  - Crepitations [Unknown]
  - Nausea [Unknown]
  - Vomiting [Unknown]
  - Pancreatitis [Unknown]
  - Abdominal pain upper [Unknown]
  - Dehydration [Unknown]
  - Blood creatinine increased [Unknown]
  - Glomerular filtration rate decreased [Unknown]
  - Alanine aminotransferase increased [Unknown]
  - C-reactive protein increased [Unknown]
  - Renal failure acute [Unknown]
  - Full blood count decreased [Unknown]
